FAERS Safety Report 10947964 (Version 1)
Quarter: 2015Q1

REPORT INFORMATION
  Report Type: Spontaneous
  Country: US (occurrence: None)
  Receive Date: 20150320
  Receipt Date: 20150320
  Transmission Date: 20150721
  Serious: Yes (Death)
  Sender: FDA-Public Use
  Company Number: 2015JUB00076

PATIENT
  Age: 29 Year
  Sex: Female

DRUGS (8)
  1. METHYLPREDNISOLONE (METHYLPREDNISOLONE) UNKNOWN [Suspect]
     Active Substance: METHYLPREDNISOLONE
  2. IVERMECTIN. [Suspect]
     Active Substance: IVERMECTIN
  3. CIPROFLOXACIN. [Concomitant]
     Active Substance: CIPROFLOXACIN
  4. INTRAVENOUS IMMUNOGLOBULIN (IVIG) (IMMUNE GLOBULIN INTRAVENOUS (HUMAN) 10% LIQUID) [Concomitant]
     Active Substance: HUMAN IMMUNOGLOBULIN G
  5. PREDNISONE (PREDNISONE) UNKNOWN [Suspect]
     Active Substance: PREDNISONE
     Indication: STRONGYLOIDIASIS
  6. CEFTRIAXONE. [Concomitant]
     Active Substance: CEFTRIAXONE
  7. DOXYCYCLINE. [Concomitant]
     Active Substance: DOXYCYCLINE
  8. CLINDAMYCIN [Concomitant]
     Active Substance: CLINDAMYCIN\CLINDAMYCIN PHOSPHATE

REACTIONS (4)
  - Drug reaction with eosinophilia and systemic symptoms [None]
  - Immune system disorder [None]
  - Pseudomonal sepsis [None]
  - Toxic epidermal necrolysis [None]
